FAERS Safety Report 8200759-1 (Version None)
Quarter: 2012Q1

REPORT INFORMATION
  Report Type: 
  Country: None (occurrence: None)
  Receive Date: 20120312
  Receipt Date: 20120228
  Transmission Date: 20120608
  Serious: Yes (Death)
  Sender: FDA-Public Use
  Company Number: US-COVIDIEN/TYCO HEALTHCARE/MALLINCKRODT-T201200842

PATIENT
  Age: 54 Year

DRUGS (1)
  1. TEMAZEPAM [Suspect]
     Dosage: UNK

REACTIONS (1)
  - DEATH [None]
